FAERS Safety Report 19456227 (Version 1)
Quarter: 2021Q2

REPORT INFORMATION
  Report Type: Other
  Country: CN (occurrence: CN)
  Receive Date: 20210624
  Receipt Date: 20210624
  Transmission Date: 20210717
  Serious: Yes (Other)
  Sender: FDA-Public Use
  Company Number: CN-ROCHE-2851172

PATIENT

DRUGS (8)
  1. CAPECITABINE. [Suspect]
     Active Substance: CAPECITABINE
     Indication: COLORECTAL CANCER METASTATIC
     Dosage: DURING DAY 1?14 (A COURSE OF TREATMENT LASTED FOR THREE WEEKS)
     Route: 048
  2. IRINOTECAN [Suspect]
     Active Substance: IRINOTECAN
     Indication: COLORECTAL CANCER METASTATIC
     Route: 041
  3. FLUOROURACIL. [Suspect]
     Active Substance: FLUOROURACIL
     Dosage: MFOLFOX REGIMEN: 2400 MG/M2 FOR 46 H?FOLFIRI REGOMEN: 1200 MG/M2 FOR 22 H ON DAY 1?2 (TWO WEEKS WERE
     Route: 042
  4. CALCIUM FOLINATE [Suspect]
     Active Substance: LEUCOVORIN CALCIUM
     Indication: COLORECTAL CANCER METASTATIC
     Route: 041
  5. CETUXIMAB. [Suspect]
     Active Substance: CETUXIMAB
     Dosage: 250 MG/M2 PER WEEK OR 500 MG/M2 EVERY TWO WEEKS FOR 60 MIN.
     Route: 042
  6. CETUXIMAB. [Suspect]
     Active Substance: CETUXIMAB
     Indication: COLORECTAL CANCER METASTATIC
     Dosage: FIRST INFUSED WITH 400 MG/M2 FOR 120 MINUTES
     Route: 042
  7. OXALIPLATIN. [Suspect]
     Active Substance: OXALIPLATIN
     Indication: COLORECTAL CANCER METASTATIC
     Dosage: IN MFOLFOX REGIMEN 85 MG/M2, IN XELOX REGIMEN 130 MG/M2.
     Route: 041
  8. FLUOROURACIL. [Suspect]
     Active Substance: FLUOROURACIL
     Indication: COLORECTAL CANCER METASTATIC
     Dosage: ON DAY 1
     Route: 042

REACTIONS (7)
  - Palmar-plantar erythrodysaesthesia syndrome [Unknown]
  - Rash [Unknown]
  - Myelosuppression [Unknown]
  - Renal impairment [Recovering/Resolving]
  - Gastrointestinal disorder [Unknown]
  - Neurotoxicity [Unknown]
  - Hepatic function abnormal [Unknown]
